FAERS Safety Report 10159288 (Version 1)
Quarter: 2014Q2

REPORT INFORMATION
  Report Type: Spontaneous
  Country: US (occurrence: None)
  Receive Date: 20140506
  Receipt Date: 20140506
  Transmission Date: 20141212
  Serious: Yes (Hospitalization)
  Sender: FDA-Public Use
  Company Number: FK201401549

PATIENT
  Age: 58 Year
  Sex: Male

DRUGS (4)
  1. VANCOMYCIN (MANUFACTURER UNKNOWN) (VANCOMYCIN) (VANCOMYCIN) [Suspect]
     Indication: EVIDENCE BASED TREATMENT
  2. AMIKACIN (AMIKACIN) [Suspect]
     Indication: EVIDENCE BASED TREATMENT
  3. LEVOFLOXACIN [Concomitant]
  4. CEFEPIME [Concomitant]

REACTIONS (1)
  - Renal failure acute [None]
